FAERS Safety Report 25162084 (Version 2)
Quarter: 2025Q2

REPORT INFORMATION
  Report Type: Spontaneous
  Country: JP (occurrence: JP)
  Receive Date: 20250404
  Receipt Date: 20250418
  Transmission Date: 20250716
  Serious: Yes (Death)
  Sender: TAIHO ONCOLOGY INC
  Company Number: JP-TAIHOP-2025-003486

PATIENT
  Age: 8 Decade
  Sex: Female

DRUGS (1)
  1. LONSURF [Suspect]
     Active Substance: TIPIRACIL HYDROCHLORIDE\TRIFLURIDINE
     Indication: Gastric cancer
     Route: 048

REACTIONS (2)
  - Cardiac arrest [Fatal]
  - Disease progression [Fatal]
